FAERS Safety Report 9962315 (Version 1)
Quarter: 2014Q1

REPORT INFORMATION
  Report Type: Report from Study
  Country: US (occurrence: US)
  Receive Date: 20140305
  Receipt Date: 20140305
  Transmission Date: 20141002
  Serious: No
  Sender: FDA-Public Use
  Company Number: US-ABBVIE-13P-163-1114920-00

PATIENT
  Age: 52 Year
  Sex: Female
  Weight: 70.82 kg

DRUGS (9)
  1. HUMIRA [Suspect]
     Indication: RHEUMATOID ARTHRITIS
     Dates: start: 2012, end: 20130612
  2. MOTRIN [Concomitant]
     Indication: RHEUMATOID ARTHRITIS
  3. ULTRAM [Concomitant]
     Indication: RHEUMATOID ARTHRITIS
  4. PLAQUENIL [Concomitant]
     Indication: RHEUMATOID ARTHRITIS
  5. METHOTREXATE [Concomitant]
     Indication: RHEUMATOID ARTHRITIS
  6. NEURONTIN [Concomitant]
     Indication: PRODUCT USED FOR UNKNOWN INDICATION
  7. FOLIC ACID [Concomitant]
     Indication: PRODUCT USED FOR UNKNOWN INDICATION
  8. TOPOMAX [Concomitant]
     Indication: MIGRAINE
  9. ESTRACE [Concomitant]
     Indication: HORMONE REPLACEMENT THERAPY

REACTIONS (4)
  - Local swelling [Not Recovered/Not Resolved]
  - Pain in extremity [Not Recovered/Not Resolved]
  - Joint swelling [Not Recovered/Not Resolved]
  - Arthralgia [Not Recovered/Not Resolved]
